FAERS Safety Report 23254557 (Version 1)
Quarter: 2023Q4

REPORT INFORMATION
  Report Type: Other
  Country: None (occurrence: US)
  Receive Date: 20231202
  Receipt Date: 20231202
  Transmission Date: 20240110
  Serious: Yes (Life-Threatening, Hospitalization)
  Sender: FDA-Public Use
  Company Number: US-B.Braun Medical Inc.-2148911

PATIENT
  Age: 61 Year
  Sex: Female

DRUGS (11)
  1. MANNITOL [Suspect]
     Active Substance: MANNITOL
     Indication: Intracranial pressure increased
  2. SODIUM CHLORIDE [Suspect]
     Active Substance: SODIUM CHLORIDE
  3. TACROLIMUS [Concomitant]
     Active Substance: TACROLIMUS
  4. MYCOPHENOLIC ACID [Concomitant]
     Active Substance: MYCOPHENOLIC ACID
  5. DEXAMETHASONE [Concomitant]
     Active Substance: DEXAMETHASONE
  6. VANCOMYCIN [Concomitant]
     Active Substance: VANCOMYCIN
  7. IMIPENEM [Concomitant]
     Active Substance: IMIPENEM
  8. ACYCLOVIR [Concomitant]
     Active Substance: ACYCLOVIR
  9. AMPHOTERICIN B [Concomitant]
     Active Substance: AMPHOTERICIN B
  10. GANCICLOVIR [Concomitant]
     Active Substance: GANCICLOVIR
  11. LEVETIRACETAM [Concomitant]
     Active Substance: LEVETIRACETAM

REACTIONS (1)
  - Drug ineffective [None]
